FAERS Safety Report 5492484-5 (Version None)
Quarter: 2007Q4

REPORT INFORMATION
  Report Type: 
  Country: None (occurrence: None)
  Receive Date: 20071015
  Receipt Date: 20070725
  Transmission Date: 20080405
  Serious: No
  Sender: FDA-Public Use
  Company Number: 2007SP002645

PATIENT
  Age: 61 Year
  Sex: Male
  Weight: 102.9665 kg

DRUGS (6)
  1. LUNESTA [Suspect]
     Indication: INSOMNIA
     Dosage: 3 MG HS ORAL
     Route: 048
     Dates: start: 20070501, end: 20070701
  2. METFORMIN HCL [Concomitant]
  3. PAXIL [Concomitant]
  4. FLOVENT [Concomitant]
  5. TIOTROPIUM [Concomitant]
  6. ATIVAN [Concomitant]

REACTIONS (1)
  - INITIAL INSOMNIA [None]
